FAERS Safety Report 22175718 (Version 2)
Quarter: 2023Q2

REPORT INFORMATION
  Report Type: Report from Study
  Country: US (occurrence: US)
  Receive Date: 20230405
  Receipt Date: 20230502
  Transmission Date: 20230722
  Serious: No
  Sender: FDA-Public Use
  Company Number: US-002147023-NVSC2023US077527

PATIENT
  Sex: Female

DRUGS (1)
  1. KISQALI [Suspect]
     Active Substance: RIBOCICLIB
     Indication: Product used for unknown indication
     Dosage: UNK
     Route: 048

REACTIONS (8)
  - Groin pain [Unknown]
  - Visual impairment [Unknown]
  - Hair growth abnormal [Unknown]
  - Muscle spasms [Unknown]
  - Rash papular [Unknown]
  - Fatigue [Unknown]
  - Pruritus [Unknown]
  - Headache [Unknown]
